FAERS Safety Report 21408751 (Version 1)
Quarter: 2022Q4

REPORT INFORMATION
  Report Type: Spontaneous
  Country: US (occurrence: None)
  Receive Date: 20221004
  Receipt Date: 20221004
  Transmission Date: 20230113
  Serious: No
  Sender: FDA-Public Use
  Company Number: None

PATIENT
  Age: 42 Year
  Sex: Female
  Weight: 81 kg

DRUGS (5)
  1. ERYTHROMYCIN [Suspect]
     Active Substance: ERYTHROMYCIN
     Indication: Hordeolum
     Dosage: OTHER STRENGTH : MG PER GRAM;?OTHER QUANTITY : 1 CENTIMETER;?FREQUENCY : 3 TIMES A DAY;?
     Route: 047
  2. PREDNISOLONE [Concomitant]
     Active Substance: PREDNISOLONE
  3. VITAMIN D3 [Concomitant]
     Active Substance: CHOLECALCIFEROL
  4. acidolphilus [Concomitant]
  5. allergy pill (Loratadine or Cetirizine) [Concomitant]

REACTIONS (4)
  - Eye haemorrhage [None]
  - Eye pain [None]
  - Episcleritis [None]
  - Hypersensitivity [None]

NARRATIVE: CASE EVENT DATE: 20221002
